FAERS Safety Report 5124730-1 (Version None)
Quarter: 2006Q4

REPORT INFORMATION
  Report Type: 
  Country: None (occurrence: None)
  Receive Date: 20061011
  Receipt Date: 20061005
  Transmission Date: 20070319
  Serious: Yes (Other)
  Sender: FDA-Public Use
  Company Number: US-AVENTIS-200618394US

PATIENT
  Sex: Female

DRUGS (2)
  1. LASIX                              /00032601/ [Suspect]
     Dosage: DOSE: UNK
  2. ATENOLOL [Suspect]
     Dosage: DOSE: UNK

REACTIONS (5)
  - BLOOD CHOLESTEROL INCREASED [None]
  - DIABETES MELLITUS [None]
  - HYPERTENSION [None]
  - OSTEOARTHRITIS [None]
  - PARKINSON'S DISEASE [None]
